FAERS Safety Report 14667571 (Version 1)
Quarter: 2018Q1

REPORT INFORMATION
  Report Type: Report from Study
  Country: US (occurrence: US)
  Receive Date: 20180322
  Receipt Date: 20180322
  Transmission Date: 20180509
  Serious: Yes (Hospitalization, Other)
  Sender: FDA-Public Use
  Company Number: US-ROCHE-2067585

PATIENT
  Age: 1 Year
  Sex: Female
  Weight: 12.1 kg

DRUGS (22)
  1. ROCEPHIN [Concomitant]
     Active Substance: CEFTRIAXONE SODIUM
  2. IVIG [Concomitant]
     Active Substance: HUMAN IMMUNOGLOBULIN G
     Route: 042
  3. ROCALTROL [Concomitant]
     Active Substance: CALCITRIOL
     Dosage: 0.5 ML (0.5UG) BY PER G TUBE ROUTE DAILY(1 MCG/ML)
     Route: 065
  4. HEPARIN [Concomitant]
     Active Substance: HEPARIN SODIUM
     Dosage: 100 UNITS/ML FOR PERITONEAL DIALYSIS
     Route: 065
  5. CHOLECALCIFEROL [Concomitant]
     Active Substance: CHOLECALCIFEROL
     Dosage: 1000UNITS BY PER G TUBE ROUTE DAILY(2000UNIT/DROP)
     Route: 065
  6. ORAPRED [Concomitant]
     Active Substance: PREDNISOLONE SODIUM PHOSPHATE
     Dosage: 3.9 MG BY PER G TUBE ROUTE DAILY(15MG/5ML)
     Route: 065
  7. HIZENTRA [Concomitant]
     Active Substance: HUMAN IMMUNOGLOBULIN G
     Dosage: 10 ML (2G) SC EVERY THURSDAY (1G/5 ML SOLUTION)
     Route: 058
  8. NEPHRONEX [Concomitant]
     Dosage: 1 ML BY PER G TUBE ROUTE DAILY (900 MCG/5 ML)
     Route: 065
  9. EPOETIN ALFA [Concomitant]
     Active Substance: ERYTHROPOIETIN
     Indication: ANAEMIA
     Dosage: (10,000UNIT/ML) MAY GIVE IV VIA CENTRAL LINE
     Route: 058
  10. TYLENOL [Concomitant]
     Active Substance: ACETAMINOPHEN
     Dosage: BY PER G TUBE ROUTE AS NEEDED MAX OF 5 DOSES/DAY
     Route: 048
  11. PENTAM [Concomitant]
     Active Substance: PENTAMIDINE ISETHIONATE
     Dosage: 31.26MG IV EVERY28DAYS,PATIENT:28MG IV EVERY28DAYS
     Route: 042
  12. TPN [Concomitant]
     Active Substance: AMINO ACIDS\DEXTROSE\ELECTROLYTES NOS\SOYBEAN OIL
     Dosage: INFUSE INTRAVENOUSLY (IV) START 2000 OVER 19 HRS
     Route: 042
  13. RITUXAN [Suspect]
     Active Substance: RITUXIMAB
     Indication: PRODUCT USED FOR UNKNOWN INDICATION
     Route: 042
  14. ZYRTEC [Concomitant]
     Active Substance: CETIRIZINE HYDROCHLORIDE
     Dosage: 2 ML (2MG) BY PER G TUBE ROUTE 2 TIMES DAILY
     Route: 048
  15. HYDROCORTISONE. [Concomitant]
     Active Substance: HYDROCORTISONE
     Dosage: APPLY TO AFFECTED AREA AS NEEDED TWICE PER DAY
     Route: 061
  16. CYTOVENE IV [Suspect]
     Active Substance: GANCICLOVIR SODIUM
     Indication: CYTOMEGALOVIRUS VIRAEMIA
     Dosage: 10MG/ML INFUSION {2 ML (20MG) INTRAVENOUSLY DAILY}
     Route: 042
     Dates: start: 20150106, end: 201612
  17. PLASMAPHERESIS [Concomitant]
     Active Substance: UNSPECIFIED INGREDIENT
     Dosage: 4 SESSIONS
     Route: 065
  18. BENADRYL [Concomitant]
     Active Substance: DIPHENHYDRAMINE HYDROCHLORIDE
     Indication: PRURITUS
     Dosage: 2 ML(5MG) BY PER G TUBE ROUTE AS NEEDED (2.5MG/ML)
     Route: 048
  19. AQUAPHOR (UNITED STATES) [Concomitant]
     Indication: DRY SKIN
     Dosage: APPLY DAILY AS NEEDED FOR DRY SKIN IN DIAPER AREA
     Route: 061
  20. VANCOMYCIN [Concomitant]
     Active Substance: VANCOMYCIN
  21. GARAMYCIN [Concomitant]
     Active Substance: GENTAMICIN SULFATE
     Dosage: APPLY DAILY AS NEEDED TO PD CATH SITE
     Route: 061
  22. FAT EMULSION NOS [Concomitant]
     Active Substance: EGG PHOSPHOLIPIDS\SAFFLOWER OIL\SOYBEAN OIL
     Dosage: INFUSE INTRAVENOUSLY (IV) START 2000 OVER 19 HRS
     Route: 042

REACTIONS (7)
  - Enterococcal bacteraemia [Unknown]
  - Malnutrition [Unknown]
  - Functional gastrointestinal disorder [Not Recovered/Not Resolved]
  - Staphylococcal infection [Unknown]
  - Peritonitis [Unknown]
  - Kidney infection [Unknown]
  - Pyrexia [Unknown]

NARRATIVE: CASE EVENT DATE: 201605
